FAERS Safety Report 5960076-7 (Version None)
Quarter: 2008Q4

REPORT INFORMATION
  Report Type: 
  Country: None (occurrence: None)
  Receive Date: 20081120
  Receipt Date: 20081111
  Transmission Date: 20090506
  Serious: Yes (Death, Life-Threatening)
  Sender: FDA-Public Use
  Company Number: JP-ABBOTT-08P-087-0482601-00

PATIENT
  Age: 46 Year
  Sex: Female

DRUGS (5)
  1. LEUPLIN FOR INJECTION 1.88 MG [Suspect]
     Indication: UTERINE LEIOMYOMA
     Route: 058
     Dates: start: 20070509, end: 20070813
  2. LEUPLIN FOR INJECTION 1.88 MG [Suspect]
     Indication: DYSMENORRHOEA
  3. LEUPLIN FOR INJECTION 1.88 MG [Suspect]
     Indication: ENDOMETRIOSIS
  4. PROPOFOL [Concomitant]
     Indication: ANAESTHESIA
     Route: 050
     Dates: start: 20070904, end: 20070904
  5. SEVOFLURANE [Concomitant]
     Indication: ANAESTHESIA
     Route: 055
     Dates: start: 20070904, end: 20070904

REACTIONS (3)
  - COMPLETED SUICIDE [None]
  - DEPRESSION [None]
  - INSOMNIA [None]
